FAERS Safety Report 19985278 (Version 3)
Quarter: 2021Q4

REPORT INFORMATION
  Report Type: Report from Study
  Country: PA (occurrence: PA)
  Receive Date: 20211022
  Receipt Date: 20211214
  Transmission Date: 20220304
  Serious: Yes (Death, Hospitalization, Other)
  Sender: FDA-Public Use
  Company Number: PA-NOVARTISPH-NVSC2021PA195555

PATIENT
  Sex: Female

DRUGS (1)
  1. KISQALI [Suspect]
     Active Substance: RIBOCICLIB
     Indication: Breast cancer metastatic
     Dosage: 400 MG, QD
     Route: 048
     Dates: start: 20200201

REACTIONS (16)
  - Death [Fatal]
  - Haemolytic anaemia [Unknown]
  - Hepatomegaly [Unknown]
  - Pain [Unknown]
  - Malaise [Unknown]
  - Haemorrhoids [Unknown]
  - Decreased immune responsiveness [Unknown]
  - Feeling abnormal [Unknown]
  - Ill-defined disorder [Unknown]
  - Constipation [Unknown]
  - Arthropathy [Recovered/Resolved]
  - Dysgeusia [Unknown]
  - Decreased appetite [Unknown]
  - Dizziness [Unknown]
  - Pyrexia [Unknown]
  - Product use issue [Unknown]
